FAERS Safety Report 25526007 (Version 1)
Quarter: 2025Q3

REPORT INFORMATION
  Report Type: Report from Study
  Country: GB (occurrence: GB)
  Receive Date: 20250707
  Receipt Date: 20250707
  Transmission Date: 20251020
  Serious: Yes (Hospitalization)
  Sender: SANDOZ
  Company Number: GB-NOVPHSZ-PHHY2017GB128103

PATIENT
  Sex: Male

DRUGS (1)
  1. OMNITROPE [Suspect]
     Active Substance: SOMATROPIN
     Indication: Hypopituitarism
     Dosage: 0.70 MG, QD
     Route: 058

REACTIONS (2)
  - Lower limb fracture [Unknown]
  - Incorrect dose administered [Unknown]
